FAERS Safety Report 13265449 (Version 1)
Quarter: 2017Q1

REPORT INFORMATION
  Report Type: Spontaneous
  Country: GB (occurrence: GB)
  Receive Date: 20170223
  Receipt Date: 20170223
  Transmission Date: 20170428
  Serious: Yes (Other)
  Sender: FDA-Public Use
  Company Number: GB-JNJFOC-20140508547

PATIENT

DRUGS (4)
  1. EVIPLERA [Suspect]
     Active Substance: EMTRICITABINE\RILPIVIRINE\TENOFOVIR DISOPROXIL FUMARATE
     Indication: HIV INFECTION
     Route: 048
  2. RILPIVIRINE [Suspect]
     Active Substance: RILPIVIRINE
     Indication: HIV INFECTION
     Route: 065
  3. ETRAVIRINE [Suspect]
     Active Substance: ETRAVIRINE
     Indication: HIV INFECTION
     Route: 048
  4. KIVEXA [Suspect]
     Active Substance: ABACAVIR SULFATE\LAMIVUDINE
     Indication: HIV INFECTION
     Route: 065

REACTIONS (5)
  - Drug resistance [Unknown]
  - Gastrointestinal toxicity [Unknown]
  - Nephropathy toxic [Unknown]
  - Toxicity to various agents [Unknown]
  - Neurotoxicity [Unknown]
